FAERS Safety Report 8935793 (Version 2)
Quarter: 2013Q1

REPORT INFORMATION
  Report Type: Spontaneous
  Country: CO (occurrence: CO)
  Receive Date: 20121130
  Receipt Date: 20130111
  Transmission Date: 20140127
  Serious: Yes (Hospitalization)
  Sender: FDA-Public Use
  Company Number: CO-UCBSA-072210

PATIENT
  Age: 59 Year
  Sex: Female

DRUGS (4)
  1. KEPPRA [Suspect]
     Indication: EPILEPSY
     Dosage: DAILY DOSE: 1500 MG
     Route: 048
     Dates: start: 2008, end: 2012
  2. LOSARTAN [Concomitant]
     Dates: start: 2006
  3. HYDROCHLOROTHIAZIDE [Concomitant]
     Dates: start: 2006
  4. PRIMIDONE [Concomitant]
     Dosage: UNKNOWN DOSE;FOR 20 YEARS

REACTIONS (12)
  - Convulsion [Recovered/Resolved]
  - Lip injury [Not Recovered/Not Resolved]
  - Face injury [Not Recovered/Not Resolved]
  - Fall [Not Recovered/Not Resolved]
  - Anxiety [Not Recovered/Not Resolved]
  - Vertigo [Not Recovered/Not Resolved]
  - Movement disorder [Not Recovered/Not Resolved]
  - Headache [Not Recovered/Not Resolved]
  - Disturbance in attention [Not Recovered/Not Resolved]
  - Otitis media [Unknown]
  - Electroencephalogram abnormal [Unknown]
  - Transaminases increased [Unknown]
